FAERS Safety Report 6867949-1 (Version None)
Quarter: 2010Q3

REPORT INFORMATION
  Report Type: 
  Country: None (occurrence: None)
  Receive Date: 20100722
  Receipt Date: 20080508
  Transmission Date: 20110219
  Serious: No
  Sender: FDA-Public Use
  Company Number: US-PFIZER INC-2008041237

PATIENT
  Sex: Female
  Weight: 57.3 kg

DRUGS (1)
  1. CHANTIX [Suspect]
     Indication: SMOKING CESSATION THERAPY
     Route: 048
     Dates: start: 20080502

REACTIONS (5)
  - BED REST [None]
  - GAIT DISTURBANCE [None]
  - HEAD DISCOMFORT [None]
  - MALAISE [None]
  - PARAESTHESIA [None]
